FAERS Safety Report 20389094 (Version 2)
Quarter: 2022Q1

REPORT INFORMATION
  Report Type: Report from Study
  Country: US (occurrence: US)
  Receive Date: 20220128
  Receipt Date: 20220316
  Transmission Date: 20220423
  Serious: Yes (Other)
  Sender: FDA-Public Use
  Company Number: US-ABBVIE-22K-163-4249928-00

PATIENT
  Age: 47 Year
  Sex: Female

DRUGS (2)
  1. RINVOQ [Suspect]
     Active Substance: UPADACITINIB
     Indication: Product used for unknown indication
     Route: 048
  2. PFIZER-BIONTECH COVID-19 VACCINE [Concomitant]
     Active Substance: TOZINAMERAN
     Indication: COVID-19 immunisation
     Route: 030
     Dates: start: 20210301, end: 20210301

REACTIONS (25)
  - Petit mal epilepsy [Not Recovered/Not Resolved]
  - Petit mal epilepsy [Unknown]
  - Spinal fusion surgery [Unknown]
  - Road traffic accident [Recovering/Resolving]
  - Asthma [Unknown]
  - Irritable bowel syndrome [Unknown]
  - Craniocerebral injury [Unknown]
  - Anxiety [Unknown]
  - Post-traumatic stress disorder [Unknown]
  - Migraine [Unknown]
  - Rheumatoid arthritis [Unknown]
  - Diverticulitis [Unknown]
  - Urticaria [Unknown]
  - Sleep apnoea syndrome [Unknown]
  - Insomnia [Unknown]
  - Depression [Unknown]
  - BRCA2 gene mutation [Unknown]
  - Autoimmune thyroiditis [Unknown]
  - Fibrocystic breast disease [Unknown]
  - Osteoarthritis [Unknown]
  - Paraesthesia [Unknown]
  - Facial bones fracture [Unknown]
  - Staphylococcal infection [Unknown]
  - Ligament rupture [Recovering/Resolving]
  - Hand fracture [Unknown]

NARRATIVE: CASE EVENT DATE: 20211101
